FAERS Safety Report 4645146-8 (Version None)
Quarter: 2005Q2

REPORT INFORMATION
  Report Type: 
  Country: None (occurrence: None)
  Receive Date: 20050422
  Receipt Date: 20050411
  Transmission Date: 20051028
  Serious: Yes (Other)
  Sender: FDA-Public Use
  Company Number: 2005057650

PATIENT
  Age: 50 Year
  Sex: Male

DRUGS (2)
  1. BEXTRA [Suspect]
     Indication: PATELLA FRACTURE
     Dosage: 40 MG (40 MG, 1 IN 1 D), ORAL
     Route: 048
     Dates: start: 20050317, end: 20050322
  2. TRAMADOL HCL [Concomitant]

REACTIONS (3)
  - GENITAL EROSION [None]
  - GENITAL ERYTHEMA [None]
  - GENITAL PRURITUS MALE [None]
